FAERS Safety Report 13430842 (Version 3)
Quarter: 2017Q3

REPORT INFORMATION
  Report Type: Spontaneous
  Country: JP (occurrence: JP)
  Receive Date: 20170412
  Receipt Date: 20170905
  Transmission Date: 20171127
  Serious: Yes (Life-Threatening, Hospitalization, Other)
  Sender: FDA-Public Use
  Company Number: JP-CELGENEUS-JPN-20170310938

PATIENT
  Age: 82 Year
  Sex: Female
  Weight: 41.8 kg

DRUGS (5)
  1. TAKELDA [Concomitant]
     Active Substance: ASPIRIN\LANSOPRAZOLE
     Indication: PRODUCT USED FOR UNKNOWN INDICATION
     Dosage: 1 DOSAGE FORMS
     Route: 048
     Dates: start: 20161021
  2. REVLIMID [Suspect]
     Active Substance: LENALIDOMIDE
     Indication: PLASMA CELL MYELOMA
     Dosage: 10 MILLIGRAM
     Route: 048
     Dates: start: 20161021, end: 20170202
  3. SENNOSIDE [Concomitant]
     Active Substance: SENNOSIDES
     Indication: PRODUCT USED FOR UNKNOWN INDICATION
     Dosage: 12 MILLIGRAM
     Route: 048
     Dates: start: 20161110
  4. LENADEX [Suspect]
     Active Substance: DEXAMETHASONE ACETATE
     Indication: PLASMA CELL MYELOMA
     Dosage: 8 MILLIGRAM
     Route: 048
     Dates: start: 20161021, end: 2017
  5. MAGNESIUM OXIDE. [Concomitant]
     Active Substance: MAGNESIUM OXIDE
     Indication: PRODUCT USED FOR UNKNOWN INDICATION
     Dosage: 990 MILLIGRAM
     Route: 048
     Dates: start: 20161110

REACTIONS (7)
  - Colon cancer [Recovering/Resolving]
  - Mechanical ileus [Recovered/Resolved]
  - Uterine leiomyoma [Unknown]
  - Neutrophil count decreased [Unknown]
  - Hiatus hernia [Unknown]
  - Haemoglobin decreased [Recovering/Resolving]
  - Hepatic cyst [Unknown]

NARRATIVE: CASE EVENT DATE: 201702
